FAERS Safety Report 9376231 (Version 1)
Quarter: 2013Q3

REPORT INFORMATION
  Report Type: Spontaneous
  Country: DK (occurrence: DK)
  Receive Date: 20130701
  Receipt Date: 20130701
  Transmission Date: 20140515
  Serious: Yes (Hospitalization)
  Sender: FDA-Public Use
  Company Number: PHHY2013DK065122

PATIENT
  Age: 80 Year
  Sex: Male

DRUGS (10)
  1. CEFUROXIME [Suspect]
     Indication: PROPHYLAXIS
     Dosage: 1.5 G DURING OPERATION
     Route: 042
  2. CEFUROXIME [Suspect]
     Dosage: 750 MG, QID FOR 5 DAYS
  3. CEFALEXIN [Suspect]
     Dosage: 1 G, TID
     Route: 048
  4. DICLOXACILLIN [Concomitant]
     Indication: PROPHYLAXIS
     Dosage: 2 G, UNK
     Route: 042
  5. BICALUTAMIDE [Concomitant]
  6. SOLIFENACIN [Concomitant]
  7. TAMSULOSIN [Concomitant]
  8. SIMVASTATIN [Concomitant]
  9. LOSARTAN [Concomitant]
  10. CLOPIDOGREL [Concomitant]

REACTIONS (7)
  - Pseudomembranous colitis [Unknown]
  - Sepsis [Unknown]
  - Abdominal discomfort [Unknown]
  - Pyrexia [Unknown]
  - Renal failure [Unknown]
  - Hypotension [Unknown]
  - Constipation [Unknown]
